FAERS Safety Report 10421008 (Version 1)
Quarter: 2014Q3

REPORT INFORMATION
  Report Type: Spontaneous
  Country: GB (occurrence: None)
  Receive Date: 20140828
  Receipt Date: 20140828
  Transmission Date: 20150326
  Serious: Yes (Death)
  Sender: FDA-Public Use
  Company Number: GB-RRD-14-00066

PATIENT
  Age: 08 Month
  Sex: Male
  Weight: 7 kg

DRUGS (2)
  1. ACTINOMYCIN D [Suspect]
     Active Substance: DACTINOMYCIN
     Indication: NEPHROBLASTOMA
     Dosage: UNKNOWN
     Route: 042
     Dates: start: 20140102, end: 20140122
  2. VINCRISTINE [Concomitant]
     Active Substance: VINCRISTINE

REACTIONS (23)
  - Abdominal distension [None]
  - Acute hepatic failure [None]
  - Infection [None]
  - Continuous haemodiafiltration [None]
  - Hepatic congestion [None]
  - Venoocclusive liver disease [None]
  - Vomiting [None]
  - Hypertensive angiopathy [None]
  - Nausea [None]
  - Abdominal compartment syndrome [None]
  - Toxicity to various agents [None]
  - Hepatomegaly [None]
  - Disseminated intravascular coagulation [None]
  - Condition aggravated [None]
  - Coagulopathy [None]
  - Multi-organ failure [None]
  - Anaemia [None]
  - Gastrointestinal haemorrhage [None]
  - Haemoglobin decreased [None]
  - Blood uric acid increased [None]
  - Hepatorenal failure [None]
  - Tumour compression [None]
  - Splenic infarction [None]

NARRATIVE: CASE EVENT DATE: 20140122
